FAERS Safety Report 6596595-2 (Version None)
Quarter: 2010Q1

REPORT INFORMATION
  Report Type: 
  Country: None (occurrence: None)
  Receive Date: 20100216
  Receipt Date: 20100203
  Transmission Date: 20100710
  Serious: Yes (Other)
  Sender: FDA-Public Use
  Company Number: 310001L10USA

PATIENT
  Age: 32 Year
  Sex: Female

DRUGS (4)
  1. FOLLITROPIN ALPHA (FOLLITROPIN ALPHA) [Suspect]
     Indication: IN VITRO FERTILISATION
     Dosage: 225 IU
  2. LEUPROLIDE (LEUPRELIN ACETATE) [Concomitant]
  3. CHORIONIC GONADOTROPIN [Concomitant]
  4. GONADOTROPHIN RELEASING HORMONE ANALOGUES [Concomitant]

REACTIONS (5)
  - ABDOMINAL DISTENSION [None]
  - FATIGUE [None]
  - HYPEREMESIS GRAVIDARUM [None]
  - OVARIAN HYPERSTIMULATION SYNDROME [None]
  - SALIVARY HYPERSECRETION [None]
